FAERS Safety Report 4327982-0 (Version None)
Quarter: 2004Q1

REPORT INFORMATION
  Report Type: 
  Country: None (occurrence: None)
  Receive Date: 20040325
  Receipt Date: 20040311
  Transmission Date: 20041129
  Serious: Yes (Life-Threatening, Hospitalization, Other)
  Sender: FDA-Public Use
  Company Number: 2004017231

PATIENT
  Age: 26 Year
  Sex: Male
  Weight: 108.8633 kg

DRUGS (13)
  1. GEODON [Suspect]
     Indication: SCHIZOPHRENIA
     Dosage: 160 MG (BID)
     Dates: start: 20040221, end: 20040309
  2. GEODON [Suspect]
     Dosage: 20 MG, INTRAMUSCULAR
     Route: 030
     Dates: start: 20040301, end: 20040301
  3. AMLODIPINE BESYLATE [Concomitant]
  4. QUINIDINE (QUINIDINE) [Concomitant]
  5. ACETAMINOPHEN [Concomitant]
  6. DIPHENHYDRAMINE HYDROCHLORIDE (DIPHYENHYDRAMINE HYDROCHLORIDE) [Concomitant]
  7. DILTIAZEM [Concomitant]
  8. GLYBURIDE [Concomitant]
  9. LEVOTHYROXINE SODIUM [Concomitant]
  10. LORAZEPAM [Concomitant]
  11. METFORMIN HCL [Concomitant]
  12. PIOGLITAZONE HCL [Concomitant]
  13. SERTRALINE HCL [Concomitant]

REACTIONS (8)
  - BLOOD ALBUMIN INCREASED [None]
  - BLOOD GLUCOSE INCREASED [None]
  - BLOOD UREA INCREASED [None]
  - HAEMATOCRIT INCREASED [None]
  - HALLUCINATION [None]
  - NEUROLEPTIC MALIGNANT SYNDROME [None]
  - PROTEIN TOTAL INCREASED [None]
  - WHITE BLOOD CELL COUNT INCREASED [None]
